FAERS Safety Report 5138320-8 (Version None)
Quarter: 2006Q4

REPORT INFORMATION
  Report Type: 
  Country: None (occurrence: None)
  Receive Date: 20061030
  Receipt Date: 20060821
  Transmission Date: 20070319
  Serious: No
  Sender: FDA-Public Use
  Company Number: US-GLAXOSMITHKLINE-A0617475A

PATIENT
  Sex: Male

DRUGS (12)
  1. ADVAIR HFA [Suspect]
     Indication: ASTHMA
     Dosage: 1PUFF TWICE PER DAY
     Route: 055
     Dates: end: 20060818
  2. DUONEB [Concomitant]
  3. BUMEX [Concomitant]
  4. K-DUR 10 [Concomitant]
  5. LOTREL [Concomitant]
  6. SINGULAIR [Concomitant]
  7. VITORIN [Concomitant]
  8. ZYRTEC [Concomitant]
  9. FLONASE [Concomitant]
  10. MOBIC [Concomitant]
  11. GLIPIZIDE [Concomitant]
  12. ALBUTEROL [Concomitant]

REACTIONS (1)
  - DRUG INEFFECTIVE [None]
